FAERS Safety Report 19813334 (Version 1)
Quarter: 2021Q3

REPORT INFORMATION
  Report Type: Spontaneous
  Country: US (occurrence: US)
  Receive Date: 20210909
  Receipt Date: 20210909
  Transmission Date: 20211014
  Serious: Yes (Other)
  Sender: FDA-Public Use
  Company Number: None

PATIENT
  Age: 39 Year
  Sex: Male

DRUGS (3)
  1. TRUVADA [Suspect]
     Active Substance: EMTRICITABINE\TENOFOVIR DISOPROXIL FUMARATE
     Indication: PROPHYLAXIS
     Route: 048
  2. DAILY MULTIVITAMIN [Concomitant]
     Active Substance: VITAMINS
  3. ABUTEROL HFA [Concomitant]

REACTIONS (2)
  - Dental caries [None]
  - Oral surgery [None]

NARRATIVE: CASE EVENT DATE: 20190311
